FAERS Safety Report 7772446-5 (Version None)
Quarter: 2011Q3

REPORT INFORMATION
  Report Type: 
  Country: None (occurrence: None)
  Receive Date: 20110922
  Receipt Date: 20110909
  Transmission Date: 20111222
  Serious: Yes (Other)
  Sender: FDA-Public Use
  Company Number: PHEH2011US03743

PATIENT
  Age: 61 Year
  Sex: Male

DRUGS (7)
  1. LOSARTAN POTASSIUM [Concomitant]
     Indication: HYPERTENSION
     Dosage: 100 MG, UNK
  2. METFORMIN [Concomitant]
     Indication: DIABETES MELLITUS
  3. SIMVASTATIN [Suspect]
  4. PLAVIX [Concomitant]
     Dosage: 75 MG, UNK
  5. BYSTOLIC [Concomitant]
     Dosage: 10 MG, UNK
  6. NIASPAN [Concomitant]
     Dosage: 500 MG, UNK
  7. AMTURNIDE [Suspect]
     Dosage: 1 DF, QD

REACTIONS (3)
  - CHEST PAIN [None]
  - MYOCARDIAL INFARCTION [None]
  - DYSPEPSIA [None]
